FAERS Safety Report 23135522 (Version 3)
Quarter: 2024Q1

REPORT INFORMATION
  Report Type: Spontaneous
  Country: FR (occurrence: FR)
  Receive Date: 20231101
  Receipt Date: 20240119
  Transmission Date: 20240410
  Serious: Yes (Disabling)
  Sender: FDA-Public Use
  Company Number: None

PATIENT
  Age: 43 Year
  Sex: Female
  Weight: 76 kg

DRUGS (2)
  1. ETHINYL ESTRADIOL\LEVONORGESTREL [Suspect]
     Active Substance: ETHINYL ESTRADIOL\LEVONORGESTREL
     Indication: Oral contraception
     Dosage: 21 DF, CYCLIC (FOR CYCLE OF 28 DAYS)
     Route: 048
  2. XARELTO [Concomitant]
     Active Substance: RIVAROXABAN
     Indication: Thrombophlebitis

REACTIONS (2)
  - Meningioma [Not Recovered/Not Resolved]
  - Meningioma [Not Recovered/Not Resolved]

NARRATIVE: CASE EVENT DATE: 20030101
